FAERS Safety Report 4404791-5 (Version None)
Quarter: 2004Q3

REPORT INFORMATION
  Report Type: 
  Country: None (occurrence: None)
  Receive Date: 20040722
  Receipt Date: 20040615
  Transmission Date: 20050211
  Serious: Yes (Other)
  Sender: FDA-Public Use
  Company Number: PHBS2004JP07808

PATIENT
  Age: 68 Year
  Sex: Male

DRUGS (9)
  1. STARSIS #AJ [Suspect]
     Indication: DIABETES MELLITUS
     Dosage: 270 MG, QD
     Route: 048
     Dates: start: 20030910, end: 20040608
  2. TICLOPIDINE HCL [Concomitant]
     Indication: MYOCARDIAL ISCHAEMIA
     Dosage: 100 MG, UNK
     Dates: start: 20000907, end: 20040608
  3. BUFORMIN HYDROCHLORIDE [Concomitant]
     Indication: DIABETES MELLITUS
     Dosage: 150 MG, UNK
     Dates: start: 20000907
  4. LASIX [Concomitant]
     Indication: MYOCARDIAL ISCHAEMIA
     Dosage: 20 MG, UNK
     Dates: start: 20000920
  5. ALDACTONE [Concomitant]
     Indication: MYOCARDIAL ISCHAEMIA
     Dosage: 25 MG, UNK
     Dates: start: 20000907
  6. WARFARIN SODIUM [Concomitant]
     Indication: MYOCARDIAL ISCHAEMIA
     Dosage: 4 MG, UNK
     Dates: start: 20000920
  7. SIGMART [Concomitant]
     Indication: MYOCARDIAL ISCHAEMIA
     Dosage: 20 MG, UNK
     Dates: start: 20000920
  8. SIMVASTATIN [Concomitant]
     Indication: HYPERLIPIDAEMIA
     Dosage: 5 MG, UNK
     Dates: start: 20010705
  9. MUCOSTA [Concomitant]
     Indication: GASTRITIS
     Dosage: 300 MG, UNK
     Dates: start: 20000907

REACTIONS (4)
  - ACUTE MYELOID LEUKAEMIA [None]
  - MALAISE [None]
  - NEUTROPHIL COUNT DECREASED [None]
  - WHITE BLOOD CELL COUNT DECREASED [None]
